FAERS Safety Report 23159806 (Version 2)
Quarter: 2024Q2

REPORT INFORMATION
  Report Type: Spontaneous
  Country: FR (occurrence: FR)
  Receive Date: 20231108
  Receipt Date: 20240410
  Transmission Date: 20240716
  Serious: Yes (Hospitalization, Other)
  Sender: FDA-Public Use
  Company Number: FR-002147023-NVSC2023FR236176

PATIENT

DRUGS (4)
  1. RUXOLITINIB [Suspect]
     Active Substance: RUXOLITINIB
     Indication: Polycythaemia vera
     Dosage: 5 MG, BID
     Route: 065
     Dates: start: 201511
  2. RUXOLITINIB [Suspect]
     Active Substance: RUXOLITINIB
     Dosage: 10 MG, BID
     Route: 065
  3. RUXOLITINIB [Suspect]
     Active Substance: RUXOLITINIB
     Dosage: 15 MG, BID
     Route: 065
     Dates: start: 2017
  4. RUXOLITINIB [Suspect]
     Active Substance: RUXOLITINIB
     Dosage: 25 MG, (10 MG IN THE MORNING AND 15 MG IN THE EVENING)
     Route: 065
     Dates: start: 20190808

REACTIONS (36)
  - Amnesia [Unknown]
  - Apathy [Unknown]
  - Aphasia [Recovering/Resolving]
  - Bronchitis [Unknown]
  - Encephalitis herpes [Unknown]
  - Arthralgia [Unknown]
  - Dizziness [Unknown]
  - Somnolence [Unknown]
  - Malaise [Unknown]
  - Epididymitis [Unknown]
  - Deafness unilateral [Unknown]
  - Anal incontinence [Unknown]
  - Memory impairment [Unknown]
  - Cough [Unknown]
  - Herpes virus infection [Unknown]
  - Fatigue [Unknown]
  - Affect lability [Unknown]
  - Irritability [Unknown]
  - Headache [Unknown]
  - Viral load increased [Unknown]
  - Sedation [Unknown]
  - Meningitis herpes [Unknown]
  - Petit mal epilepsy [Unknown]
  - Myoclonic epilepsy [Unknown]
  - Asthma [Unknown]
  - Phobia [Unknown]
  - Lung disorder [Unknown]
  - Injury [Unknown]
  - Deafness unilateral [Unknown]
  - Cognitive disorder [Unknown]
  - Memory impairment [Unknown]
  - Sleep disorder [Unknown]
  - Disorientation [Unknown]
  - Generalised tonic-clonic seizure [Unknown]
  - Aphasia [Unknown]
  - Pyrexia [Not Recovered/Not Resolved]

NARRATIVE: CASE EVENT DATE: 20160128
